FAERS Safety Report 8741111 (Version 4)
Quarter: 2013Q2

REPORT INFORMATION
  Report Type: Spontaneous
  Country: US (occurrence: US)
  Receive Date: 20120824
  Receipt Date: 20130417
  Transmission Date: 20140414
  Serious: Yes (Hospitalization)
  Sender: FDA-Public Use
  Company Number: US-ASTRAZENECA-2011SE75544

PATIENT
  Age: 51 Year
  Sex: Female

DRUGS (1)
  1. SYMBICORT PMDI [Suspect]
     Dosage: FREQUENCY UNKNOWN
     Route: 055

REACTIONS (7)
  - Cyst [Unknown]
  - Asthma [Unknown]
  - Dyspnoea [Unknown]
  - Upper respiratory tract infection [Unknown]
  - Malaise [Unknown]
  - Influenza [Unknown]
  - Drug dose omission [Unknown]
